FAERS Safety Report 5912486-1 (Version None)
Quarter: 2008Q4

REPORT INFORMATION
  Report Type: 
  Country: None (occurrence: None)
  Receive Date: 20081007
  Receipt Date: 20081007
  Transmission Date: 20090506
  Serious: Yes (Other)
  Sender: FDA-Public Use
  Company Number: None

PATIENT
  Sex: Female
  Weight: 58.0604 kg

DRUGS (3)
  1. BUPROPION HCL [Suspect]
     Indication: FATIGUE
     Dosage: 1  DAILY/FOR 7 DAYS PO
     Route: 048
     Dates: start: 20080919, end: 20080925
  2. BUPROPION HCL [Suspect]
     Indication: FATIGUE
     Dosage: 1 AFTER 7 DAY TREATMENT OF #1 DAILY PO
     Route: 048
     Dates: start: 20080926, end: 20081005
  3. NEXIUM [Suspect]

REACTIONS (1)
  - ALOPECIA [None]
